FAERS Safety Report 4428558-7 (Version None)
Quarter: 2004Q3

REPORT INFORMATION
  Report Type: 
  Country: None (occurrence: None)
  Receive Date: 20040818
  Receipt Date: 20030502
  Transmission Date: 20050211
  Serious: No
  Sender: FDA-Public Use
  Company Number: US-BRISTOL-MYERS SQUIBB COMPANY-12280822

PATIENT

DRUGS (2)
  1. BLEOMYCIN SULFATE [Suspect]
     Indication: SKIN PAPILLOMA
     Dosage: UNITS
     Route: 023
  2. LIDOCAINE [Concomitant]
     Route: 023

REACTIONS (1)
  - PAIN [None]
